FAERS Safety Report 4386624-9 (Version None)
Quarter: 2004Q2

REPORT INFORMATION
  Report Type: 
  Country: None (occurrence: None)
  Receive Date: 20040629
  Receipt Date: 20040617
  Transmission Date: 20050107
  Serious: Yes (Other)
  Sender: FDA-Public Use
  Company Number: SE-GLAXOSMITHKLINE-B0336916A

PATIENT
  Age: 56 Year
  Sex: Female

DRUGS (2)
  1. ZYBAN [Suspect]
     Dosage: 1TAB SEE DOSAGE TEXT
     Dates: start: 20040517
  2. MORPHINE [Concomitant]

REACTIONS (3)
  - FIBROMYALGIA [None]
  - SUICIDAL IDEATION [None]
  - THINKING ABNORMAL [None]
